FAERS Safety Report 24273413 (Version 1)
Quarter: 2024Q3

REPORT INFORMATION
  Report Type: Spontaneous
  Country: PT (occurrence: PT)
  Receive Date: 20240902
  Receipt Date: 20240902
  Transmission Date: 20241016
  Serious: Yes (Hospitalization, Other)
  Sender: ACCORD
  Company Number: PT-EMA-DD-20240812-7482689-071336

PATIENT
  Age: 66 Year
  Sex: Male

DRUGS (5)
  1. ESOMEPRAZOLE [Suspect]
     Active Substance: ESOMEPRAZOLE
     Indication: Helicobacter infection
     Dosage: 4 DAYS BEFORE ADMISSION
  2. CARBAMAZEPINE [Interacting]
     Active Substance: CARBAMAZEPINE
     Indication: Partial seizures
  3. CLARITHROMYCIN [Interacting]
     Active Substance: CLARITHROMYCIN
     Indication: Helicobacter infection
     Dosage: 4 DAYS BEFORE ADMISSION
  4. AMOXICILLIN SODIUM [Concomitant]
     Active Substance: AMOXICILLIN SODIUM
     Indication: Helicobacter infection
     Dosage: 4 DAYS BEFORE ADMISSION
  5. METRONIDAZOLE SODIUM [Concomitant]
     Active Substance: METRONIDAZOLE SODIUM
     Indication: Helicobacter infection
     Dosage: 4 DAYS BEFORE ADMISSION

REACTIONS (3)
  - Overdose [Recovering/Resolving]
  - Cerebellar syndrome [Recovered/Resolved]
  - Toxicity to various agents [Recovering/Resolving]
